FAERS Safety Report 8287046-0 (Version None)
Quarter: 2012Q2

REPORT INFORMATION
  Report Type: 
  Country: None (occurrence: None)
  Receive Date: 20120416
  Receipt Date: 20120411
  Transmission Date: 20120825
  Serious: Yes (Other)
  Sender: FDA-Public Use
  Company Number: ES-ROXANE LABORATORIES, INC.-2012-EU-02028GD

PATIENT
  Age: 73 Year
  Sex: Male

DRUGS (3)
  1. LEVOFLOXACIN [Suspect]
  2. MORPHINE [Suspect]
  3. LORAZEPAM [Suspect]

REACTIONS (3)
  - GRAND MAL CONVULSION [None]
  - STATUS EPILEPTICUS [None]
  - BRADYPHRENIA [None]
